FAERS Safety Report 11384265 (Version 1)
Quarter: 2015Q3

REPORT INFORMATION
  Report Type: Spontaneous
  Country: US (occurrence: US)
  Receive Date: 20150811
  Receipt Date: 20150811
  Transmission Date: 20151125
  Serious: No
  Sender: FDA-Public Use
  Company Number: US-ELI_LILLY_AND_COMPANY-US201005000660

PATIENT
  Age: 53 Year
  Sex: Male

DRUGS (20)
  1. VITAMIN D [Concomitant]
     Active Substance: CHOLECALCIFEROL
     Dosage: 50000 U, WEEKLY (1/W)
  2. GLYBURIDE/METFORMIN [Concomitant]
     Active Substance: GLYBURIDE\METFORMIN
     Dosage: 1 D/F, UNK
  3. SPIRONOLACTONE W/HYDROCHLOROTHIAZIDE [Concomitant]
     Active Substance: HYDROCHLOROTHIAZIDE\SPIRONOLACTONE
     Dosage: 1 D/F, UNK
  4. OMEGA 3 [Concomitant]
     Active Substance: OMEGA-3 FATTY ACIDS
     Dosage: 1000 MG, 2/D
  5. FLAXSEED [Concomitant]
     Active Substance: FLAX SEED
     Dosage: 1000 MG, UNK
  6. PRAVASTATIN [Concomitant]
     Active Substance: PRAVASTATIN\PRAVASTATIN SODIUM
  7. VITAMIN E [Concomitant]
     Active Substance: .ALPHA.-TOCOPHEROL
     Dosage: 400 IU, UNK
  8. CLONIDINE. [Concomitant]
     Active Substance: CLONIDINE
     Dosage: 5 UG, DAILY (1/D)
  9. VITAMIN D [Concomitant]
     Active Substance: CHOLECALCIFEROL
     Dosage: 1000 IU, DAILY (1/D)
  10. CIALIS [Suspect]
     Active Substance: TADALAFIL
     Dosage: 5 MG, DAILY (1/D)
     Dates: start: 20100901
  11. GLYBURIDE. [Concomitant]
     Active Substance: GLYBURIDE
     Dosage: 5 MG, 2/D
  12. GEMFIBROZIL. [Concomitant]
     Active Substance: GEMFIBROZIL
     Dosage: 600 MG, 2/D
  13. LEVOTHYROXINE. [Concomitant]
     Active Substance: LEVOTHYROXINE
     Dosage: 100 UG, UNK
  14. CIALIS [Suspect]
     Active Substance: TADALAFIL
     Indication: ERECTILE DYSFUNCTION
     Dosage: 10 MG, AS NEEDED
  15. BENAZEPRIL [Concomitant]
     Active Substance: BENAZEPRIL HYDROCHLORIDE
     Dosage: 60 MG, QOD
  16. LANTUS [Concomitant]
     Active Substance: INSULIN GLARGINE
     Dosage: 50 U, EACH EVENING
  17. METFORMIN [Concomitant]
     Active Substance: METFORMIN HYDROCHLORIDE
     Dosage: 750 MG, UNK
  18. BENAZEPRIL [Concomitant]
     Active Substance: BENAZEPRIL HYDROCHLORIDE
     Dosage: 80 MG, QOD
  19. PRILOSEC [Concomitant]
     Active Substance: OMEPRAZOLE MAGNESIUM
  20. FISH OIL [Concomitant]
     Active Substance: FISH OIL

REACTIONS (3)
  - Asthenia [Recovered/Resolved]
  - Drug ineffective [Unknown]
  - Dry mouth [Recovered/Resolved]
